FAERS Safety Report 4948078-0 (Version None)
Quarter: 2006Q1

REPORT INFORMATION
  Report Type: 
  Country: None (occurrence: None)
  Receive Date: 20060320
  Receipt Date: 20050930
  Transmission Date: 20060701
  Serious: Yes (Death)
  Sender: FDA-Public Use
  Company Number: US-MERCK-0510USA01369

PATIENT
  Age: 65 Year
  Sex: Female
  Weight: 82 kg

DRUGS (1)
  1. VIOXX [Suspect]
     Indication: MUSCULOSKELETAL STIFFNESS
     Route: 048
     Dates: start: 20021001

REACTIONS (5)
  - CARDIAC DISORDER [None]
  - DEATH [None]
  - EMOTIONAL DISORDER [None]
  - LIVER DISORDER [None]
  - RENAL DISORDER [None]
